FAERS Safety Report 8890127 (Version 1)
Quarter: 2012Q4

REPORT INFORMATION
  Report Type: 
  Country: DE (occurrence: DE)
  Receive Date: 20121107
  Receipt Date: 20121107
  Transmission Date: 20130627
  Serious: Yes (Life-Threatening, Hospitalization, Disabling)
  Sender: FDA-Public Use
  Company Number: DE-MILLENNIUM PHARMACEUTICALS, INC.-2012-07650

PATIENT

DRUGS (1)
  1. VELCADE [Suspect]
     Indication: PLASMACYTOMA
     Dosage: 1.3 mg/m2, UNK
     Route: 042
     Dates: start: 20121015, end: 20121015

REACTIONS (2)
  - Cerebral haemorrhage [Unknown]
  - Off label use [Unknown]
